FAERS Safety Report 9301634 (Version 1)
Quarter: 2013Q2

REPORT INFORMATION
  Report Type: Spontaneous
  Country: CA (occurrence: CA)
  Receive Date: 20130521
  Receipt Date: 20130521
  Transmission Date: 20140414
  Serious: Yes (Other)
  Sender: FDA-Public Use
  Company Number: CA-UCBSA-086078

PATIENT
  Sex: Female

DRUGS (2)
  1. VIMPAT [Suspect]
     Indication: PARTIAL SEIZURES
  2. TEMOZOLOMIDE [Suspect]
     Dosage: UNKNOWN DOSE

REACTIONS (1)
  - White blood cell count decreased [Unknown]
